FAERS Safety Report 25343830 (Version 3)
Quarter: 2025Q2

REPORT INFORMATION
  Report Type: Spontaneous
  Country: JP (occurrence: JP)
  Receive Date: 20250521
  Receipt Date: 20250613
  Transmission Date: 20250716
  Serious: Yes (Congenital Anomaly)
  Sender: BIOMARIN
  Company Number: JP-BIOMARINAP-JP-2025-165991

PATIENT

DRUGS (1)
  1. VOXZOGO [Suspect]
     Active Substance: VOSORITIDE
     Indication: Osteochondrodysplasia
     Dosage: 15 MICROGRAM/KILOGRAM, QD
     Route: 058
     Dates: start: 20240513

REACTIONS (2)
  - Scoliosis [Not Recovered/Not Resolved]
  - Kyphosis [Not Recovered/Not Resolved]

NARRATIVE: CASE EVENT DATE: 20250101
